FAERS Safety Report 4309639-5 (Version None)
Quarter: 2004Q1

REPORT INFORMATION
  Report Type: 
  Country: None (occurrence: None)
  Receive Date: 20040301
  Receipt Date: 20040213
  Transmission Date: 20041129
  Serious: Yes (Death, Hospitalization, Other)
  Sender: FDA-Public Use
  Company Number: US067484 NLWYE412819NOV03

PATIENT
  Age: 71 Year
  Sex: Male

DRUGS (5)
  1. ENBREL [Suspect]
     Indication: RHEUMATOID ARTHRITIS
     Dosage: 25 MG, 2 IN 1 WEEKS, SC
     Route: 058
     Dates: start: 20010601, end: 20041106
  2. PREDNISONE [Concomitant]
  3. NAPROXEN [Concomitant]
  4. CALCIUM CARBONATE [Concomitant]
  5. TRIMETHOPRIM-SULFAMETHOXAZOLE [Concomitant]

REACTIONS (4)
  - DIALYSIS [None]
  - DIARRHOEA [None]
  - MULTIPLE MYELOMA [None]
  - RENAL FAILURE ACUTE [None]
